FAERS Safety Report 11709418 (Version 1)
Quarter: 2015Q4

REPORT INFORMATION
  Report Type: Spontaneous
  Country: US (occurrence: US)
  Receive Date: 20151104
  Receipt Date: 20151104
  Transmission Date: 20160304
  Serious: No
  Sender: FDA-Public Use
  Company Number: US-ELI_LILLY_AND_COMPANY-US201103004503

PATIENT
  Sex: Female

DRUGS (1)
  1. FORTEO [Suspect]
     Active Substance: TERIPARATIDE
     Indication: OSTEOPOROSIS
     Dosage: UNK, UNK

REACTIONS (14)
  - Injection site bruising [Unknown]
  - Limb injury [Unknown]
  - Heart rate increased [Unknown]
  - Feeling abnormal [Unknown]
  - Cardiac disorder [Not Recovered/Not Resolved]
  - Pain [Unknown]
  - Fall [Recovered/Resolved]
  - Head injury [Unknown]
  - Urine analysis abnormal [Unknown]
  - Palpitations [Unknown]
  - Anxiety [Unknown]
  - Joint injury [Unknown]
  - Adverse drug reaction [Unknown]
  - Asthenia [Unknown]

NARRATIVE: CASE EVENT DATE: 20110310
